FAERS Safety Report 11598180 (Version 1)
Quarter: 2015Q4

REPORT INFORMATION
  Report Type: Spontaneous
  Country: US (occurrence: US)
  Receive Date: 20151006
  Receipt Date: 20151006
  Transmission Date: 20160304
  Serious: Yes (Hospitalization, Other)
  Sender: FDA-Public Use
  Company Number: US-PFIZER INC-2015330703

PATIENT
  Age: 58 Year
  Sex: Female
  Weight: 60 kg

DRUGS (5)
  1. KEPPRA [Concomitant]
     Active Substance: LEVETIRACETAM
     Indication: SEIZURE
     Dosage: 1500 MG, 2X/DAY, AT 6 AM AND AT 6 PM
  2. CRESTOR [Concomitant]
     Active Substance: ROSUVASTATIN CALCIUM
     Indication: ATRIOVENTRICULAR BLOCK
     Dosage: 10 MG, 1X/DAY, AT NIGHT
  3. LYRICA [Suspect]
     Active Substance: PREGABALIN
     Indication: NEUROPATHY PERIPHERAL
     Dosage: 500 MG, DAILY, 300MG CAPSULE AT NIGHT, 100MG CAPSULE TWO IN MORNING
     Route: 048
     Dates: start: 2005
  4. LYRICA [Suspect]
     Active Substance: PREGABALIN
     Dosage: 300 MG, ALTERNATE DAY, EVERY OTHER NIGHT
     Route: 048
  5. BABY ASPIRIN [Concomitant]
     Active Substance: ASPIRIN
     Dosage: 87 MG, 1X/DAY

REACTIONS (2)
  - Seizure [Unknown]
  - Generalised tonic-clonic seizure [Recovered/Resolved]

NARRATIVE: CASE EVENT DATE: 20150909
